FAERS Safety Report 4299602-5 (Version None)
Quarter: 2004Q1

REPORT INFORMATION
  Report Type: 
  Country: None (occurrence: None)
  Receive Date: 20040217
  Receipt Date: 20040203
  Transmission Date: 20041129
  Serious: Yes (Hospitalization, Other)
  Sender: FDA-Public Use
  Company Number: 2004-00490

PATIENT
  Age: 23 Year
  Sex: Female

DRUGS (1)
  1. DIPHENHYDRAMINE HCL [Suspect]
     Dosage: 90, SINGLE, ORAL
     Route: 048

REACTIONS (3)
  - GRAND MAL CONVULSION [None]
  - NODAL ARRHYTHMIA [None]
  - OVERDOSE [None]
